FAERS Safety Report 14296954 (Version 2)
Quarter: 2018Q1

REPORT INFORMATION
  Report Type: Spontaneous
  Country: IT (occurrence: IT)
  Receive Date: 20171218
  Receipt Date: 20180320
  Transmission Date: 20180509
  Serious: Yes (Other)
  Sender: FDA-Public Use
  Company Number: IT-PFIZER INC-2017532173

PATIENT
  Age: 77 Year
  Sex: Female

DRUGS (6)
  1. DELTACORTENE [Concomitant]
     Active Substance: PREDNISONE
     Dosage: UNK
  2. PALEXIA [Suspect]
     Active Substance: TAPENTADOL HYDROCHLORIDE
     Indication: TRIGEMINAL NEURALGIA
     Dosage: 2 DF, 1X/DAY
     Route: 048
     Dates: start: 20171029, end: 20171123
  3. LAMICTAL [Concomitant]
     Active Substance: LAMOTRIGINE
     Dosage: UNK
  4. LYRICA [Suspect]
     Active Substance: PREGABALIN
     Indication: TRIGEMINAL NEURALGIA
     Dosage: 150 MG, 1X/DAY
     Route: 048
     Dates: start: 20171029, end: 20171123
  5. NEXIUM [Concomitant]
     Active Substance: ESOMEPRAZOLE MAGNESIUM
     Dosage: UNK
  6. TEGRETOL [Suspect]
     Active Substance: CARBAMAZEPINE
     Indication: TRIGEMINAL NEURALGIA
     Dosage: 1000 MG, 1X/DAY
     Route: 048
     Dates: start: 20171029, end: 20171123

REACTIONS (3)
  - Bradykinesia [Recovering/Resolving]
  - Hallucination [Recovering/Resolving]
  - Bradyphrenia [Recovering/Resolving]

NARRATIVE: CASE EVENT DATE: 20171123
